FAERS Safety Report 5146459-6 (Version None)
Quarter: 2006Q4

REPORT INFORMATION
  Report Type: 
  Country: None (occurrence: None)
  Receive Date: 20061102
  Receipt Date: 20061026
  Transmission Date: 20070319
  Serious: Yes (Hospitalization)
  Sender: FDA-Public Use
  Company Number: 163-21880-06080221

PATIENT
  Age: 83 Year
  Sex: Male
  Weight: 70.7611 kg

DRUGS (25)
  1. REVLIMID [Suspect]
     Indication: MULTIPLE MYELOMA
     Dosage: 25 MG, QD X 21 DAYS, ORAL
     Route: 048
     Dates: start: 20060712, end: 20060730
  2. REVLIMID [Suspect]
     Indication: MULTIPLE MYELOMA
     Dosage: 25 MG, QD X 21 DAYS, ORAL
     Route: 048
     Dates: start: 20060817
  3. DEXAMETHASONE TAB [Suspect]
     Indication: MULTIPLE MYELOMA
     Dosage: 40 MG, QWK, ORAL
     Route: 048
     Dates: start: 20060712
  4. BIAXIN [Suspect]
     Indication: MULTIPLE MYELOMA
     Dosage: 500 MG, BID, ORAL
     Route: 048
     Dates: start: 20060712
  5. CLOPIDOGREL [Suspect]
     Indication: DRUG USE FOR UNKNOWN INDICATION
     Dates: start: 20060731, end: 20060804
  6. NASOCORT (BUDESONIDE) (NASAL DROPS (INCLUDING NASAL SPRAY) [Concomitant]
  7. ZOMETA [Concomitant]
  8. SYNTHROID [Concomitant]
  9. TOPROL-XL [Concomitant]
  10. ALLEGRA [Concomitant]
  11. TERAZOSIN HCL [Concomitant]
  12. NEXIUM [Concomitant]
  13. MULTIVITAMIN [Concomitant]
  14. LIPITOR [Concomitant]
  15. ENALAPRIL MALEATE [Concomitant]
  16. PLAVIX [Concomitant]
  17. ARTHROTEC [Concomitant]
  18. NORVASC [Concomitant]
  19. FLOMAX [Concomitant]
  20. ACTONEL [Concomitant]
  21. ASPIRIN [Concomitant]
  22. CALCIUM CARBONATE/CHOLECALCIFEROL (LEKOVIT CA) [Concomitant]
  23. FINASTERIDE [Concomitant]
  24. METOPROLOL TARTRATE [Concomitant]
  25. HEPARIN [Concomitant]

REACTIONS (8)
  - ANAEMIA [None]
  - DECREASED APPETITE [None]
  - DIZZINESS [None]
  - ELECTROLYTE IMBALANCE [None]
  - FALL [None]
  - HYPONATRAEMIA [None]
  - PNEUMONIA [None]
  - RIB FRACTURE [None]
